FAERS Safety Report 23500309 (Version 1)
Quarter: 2024Q1

REPORT INFORMATION
  Report Type: Spontaneous
  Country: FR (occurrence: FR)
  Receive Date: 20240208
  Receipt Date: 20240208
  Transmission Date: 20240410
  Serious: Yes (Hospitalization)
  Sender: FDA-Public Use
  Company Number: None

PATIENT
  Age: 24 Year
  Sex: Male
  Weight: 92 kg

DRUGS (1)
  1. LAMOTRIGINE [Suspect]
     Active Substance: LAMOTRIGINE
     Indication: Bipolar disorder
     Dosage: 100MG/D FOR THE FIRST 2 DAYS (50-0-50) THEN 150MG/D (100-0-50)
     Route: 048
     Dates: start: 20231113, end: 20231123

REACTIONS (4)
  - Transaminases increased [Recovering/Resolving]
  - Rash maculo-papular [Recovering/Resolving]
  - Lymphadenitis [Recovering/Resolving]
  - Pyrexia [Recovering/Resolving]

NARRATIVE: CASE EVENT DATE: 20231122
